FAERS Safety Report 4457591-4 (Version None)
Quarter: 2004Q3

REPORT INFORMATION
  Report Type: 
  Country: None (occurrence: None)
  Receive Date: 20040902
  Receipt Date: 20040617
  Transmission Date: 20050211
  Serious: No
  Sender: FDA-Public Use
  Company Number: 200412046BWH

PATIENT
  Age: 73 Year
  Sex: Male
  Weight: 91.173 kg

DRUGS (6)
  1. LEVITRA [Suspect]
     Indication: ERECTILE DYSFUNCTION
     Dosage: 20 MG, TOTAL DAILY, ORAL
     Route: 048
     Dates: start: 20040123
  2. VIAGRA [Concomitant]
  3. MUSE [Concomitant]
  4. AZMACORT [Concomitant]
  5. HERBOVIRILITY [Concomitant]
  6. CIALIS [Concomitant]

REACTIONS (2)
  - ANORGASMIA [None]
  - ERECTILE DYSFUNCTION [None]
